FAERS Safety Report 10070363 (Version 1)
Quarter: 2014Q2

REPORT INFORMATION
  Report Type: Spontaneous
  Country: US (occurrence: None)
  Receive Date: 20140409
  Receipt Date: 20140409
  Transmission Date: 20141212
  Serious: Yes (Hospitalization)
  Sender: FDA-Public Use
  Company Number: None

PATIENT
  Age: 67 Year
  Sex: Female
  Weight: 58.6 kg

DRUGS (7)
  1. CYCLOPHOSPHAMIDE [Suspect]
  2. DOXORUBICIN [Suspect]
  3. ETOPOSIDE [Suspect]
  4. METHOTREXATE [Suspect]
     Dosage: 24 MG, 12 MG DAY 1 AND DAY 5
  5. PREDNISONE [Suspect]
     Dosage: 100 MG, TWICE A DAY FOR 5 DAYS?
  6. RITUXIMAB (MOAB C2B8 ANTI CD20, CHIMERIC) [Suspect]
  7. VINCRISTINE SULFATE [Suspect]

REACTIONS (5)
  - Pyrexia [None]
  - Fatigue [None]
  - Neutrophil count decreased [None]
  - Clostridium test positive [None]
  - Haemoglobin decreased [None]
